FAERS Safety Report 20208518 (Version 9)
Quarter: 2022Q1

REPORT INFORMATION
  Report Type: Spontaneous
  Country: IT (occurrence: IT)
  Receive Date: 20211220
  Receipt Date: 20220223
  Transmission Date: 20220423
  Serious: Yes (Death, Hospitalization, Other)
  Sender: FDA-Public Use
  Company Number: IT-ORGANON-O2112ITA001795

PATIENT
  Age: 77 Year
  Sex: Female
  Weight: 50 kg

DRUGS (50)
  1. SIMVASTATIN [Suspect]
     Active Substance: SIMVASTATIN
     Indication: Dyslipidaemia
     Dosage: 20 MILLIGRAM, 1 IN 1D
     Route: 048
     Dates: start: 20150101, end: 20211116
  2. ACETAMINOPHEN [Suspect]
     Active Substance: ACETAMINOPHEN
     Indication: Contusion
     Dosage: 500 MG,1 IN 1
     Route: 048
     Dates: start: 20211020, end: 20211020
  3. ACETAMINOPHEN [Suspect]
     Active Substance: ACETAMINOPHEN
     Indication: Haemorrhoids
     Dosage: 1 GM,1 IN 1 AS REQUIRED
     Route: 048
     Dates: start: 20211021, end: 20211114
  4. ACETAMINOPHEN [Suspect]
     Active Substance: ACETAMINOPHEN
     Dosage: 1 GM,1 IN 1, PRN
     Route: 042
     Dates: start: 20211025, end: 20211025
  5. NOXAFIL [Suspect]
     Active Substance: POSACONAZOLE
     Indication: Antifungal prophylaxis
     Dosage: 100 MG, 3 IN 1 D
     Route: 048
     Dates: start: 20210922, end: 20211114
  6. NOXAFIL [Suspect]
     Active Substance: POSACONAZOLE
     Dosage: 100 MG, 3 IN 1 D
     Route: 048
     Dates: start: 20210922, end: 20211114
  7. IMETELSTAT [Suspect]
     Active Substance: IMETELSTAT
     Dosage: UNK
  8. LEVOFLOXACIN [Suspect]
     Active Substance: LEVOFLOXACIN
     Dosage: 500 MILLIGRAM, QD
     Route: 048
     Dates: end: 20211114
  9. OMEPRAZOLE [Concomitant]
     Active Substance: OMEPRAZOLE
     Indication: Prophylaxis
     Dosage: 20 GRAM, 1 IN 1 D
     Route: 048
     Dates: start: 20190101
  10. SODIUM CHLORIDE [Concomitant]
     Active Substance: SODIUM CHLORIDE
     Indication: Hyponatraemia
     Dosage: 2340 MILLIGRAM, 1 IN 1
     Route: 042
     Dates: start: 20211021, end: 20211021
  11. SODIUM CHLORIDE [Concomitant]
     Active Substance: SODIUM CHLORIDE
     Dosage: 2340 MILLIGRAM, 1 IN 1
     Route: 042
     Dates: start: 20211022, end: 20211022
  12. SODIUM CHLORIDE [Concomitant]
     Active Substance: SODIUM CHLORIDE
     Dosage: 2340 MILLIGRAM, 1 IN 1
     Route: 042
     Dates: start: 20211025, end: 20211025
  13. SODIUM CHLORIDE [Concomitant]
     Active Substance: SODIUM CHLORIDE
     Dosage: 2340 MILLIGRAM, 1 IN 1
     Route: 042
     Dates: start: 20211026, end: 20211026
  14. SODIUM CHLORIDE [Concomitant]
     Active Substance: SODIUM CHLORIDE
     Dosage: UNK
     Route: 042
     Dates: start: 20211112, end: 20211112
  15. SODIUM CHLORIDE [Concomitant]
     Active Substance: SODIUM CHLORIDE
     Dosage: 60 MEQ, DAILY
  16. SODIUM CHLORIDE [Concomitant]
     Active Substance: SODIUM CHLORIDE
     Dosage: UNK
     Route: 042
     Dates: start: 20211116, end: 20211119
  17. MOVICOL [Concomitant]
     Active Substance: POLYETHYLENE GLYCOL 3350\POTASSIUM CHLORIDE\SODIUM BICARBONATE\SODIUM CHLORIDE
     Indication: Constipation
     Dosage: 41.4 GM (13.8 GM, 3 IN 1 D)
     Route: 048
     Dates: start: 20211021
  18. PROCTOLYN [Concomitant]
     Indication: Haemorrhoids
     Dosage: 0.1+10 MG (3 IN 1 D)
     Route: 061
     Dates: start: 20211021, end: 20211028
  19. ACYCLOVIR [Concomitant]
     Active Substance: ACYCLOVIR
     Indication: Prophylaxis
     Dosage: 800 MG,1 IN 1 D
     Route: 048
     Dates: start: 20190101, end: 20211114
  20. TRAMADOL [Concomitant]
     Active Substance: TRAMADOL
     Indication: Haemorrhoids
     Dosage: 100 MG,1 IN 1
     Route: 042
     Dates: start: 20211026, end: 20211026
  21. TRAMADOL [Concomitant]
     Active Substance: TRAMADOL
     Indication: Haemorrhoids
  22. MEROPENEM [Concomitant]
     Active Substance: MEROPENEM
     Indication: Pneumonia
     Dosage: 1000 MG, 3 IN 1 D
     Route: 042
     Dates: start: 20210916, end: 20210921
  23. MEROPENEM [Concomitant]
     Active Substance: MEROPENEM
     Dosage: 1000 MG, 3 IN 1 D
     Route: 042
     Dates: start: 20210916, end: 20210921
  24. MODURETIC 5-50 [Concomitant]
     Active Substance: AMILORIDE HYDROCHLORIDE\HYDROCHLOROTHIAZIDE
     Indication: Hypertension
     Dosage: 5+50 MG (5 MG,1 IN 1 D)
     Route: 048
     Dates: start: 20150101
  25. MODURETIC 5-50 [Concomitant]
     Active Substance: AMILORIDE HYDROCHLORIDE\HYDROCHLOROTHIAZIDE
     Dosage: 5+50 MG (5 MG,1 IN 1 D)
     Route: 048
     Dates: start: 20150101
  26. HYDROXYUREA [Concomitant]
     Active Substance: HYDROXYUREA
     Indication: Acute myeloid leukaemia
     Dosage: 500 MG, 2 IN 1 D
     Route: 048
     Dates: start: 20210906, end: 20211017
  27. HYDROXYUREA [Concomitant]
     Active Substance: HYDROXYUREA
     Indication: Acute myeloid leukaemia
     Dosage: 500 MG, 2 IN 1 D
     Route: 048
     Dates: start: 20210906, end: 20211017
  28. HUMAN RED BLOOD CELL [Concomitant]
     Active Substance: HUMAN RED BLOOD CELL
     Indication: Anaemia
     Dosage: UNK
     Route: 042
     Dates: start: 20211010, end: 20211010
  29. HUMAN RED BLOOD CELL [Concomitant]
     Active Substance: HUMAN RED BLOOD CELL
     Dosage: UNK
     Route: 042
     Dates: start: 20211020, end: 20211020
  30. HUMAN RED BLOOD CELL [Concomitant]
     Active Substance: HUMAN RED BLOOD CELL
     Dosage: UNK
     Route: 042
     Dates: start: 20211025, end: 20211025
  31. SODIUM [Concomitant]
     Active Substance: SODIUM
     Indication: Hyponatraemia
     Dosage: 0.9 %, 1 IN 1 AS REQUIRED
     Route: 042
     Dates: start: 20211018, end: 20211019
  32. SODIUM [Concomitant]
     Active Substance: SODIUM
     Indication: Hyponatraemia
     Dosage: 0.9 %, 1 IN 1 AS REQUIRED
     Route: 042
     Dates: start: 20211018, end: 20211019
  33. PLATELETS [Concomitant]
     Active Substance: HUMAN PLATELET, ALLOGENIC
     Indication: Thrombocytopenia
     Dosage: UNK
     Route: 042
     Dates: start: 20211019, end: 20211019
  34. PLATELETS [Concomitant]
     Active Substance: HUMAN PLATELET, ALLOGENIC
     Dosage: UNK
     Route: 042
     Dates: start: 20211102, end: 20211102
  35. PLATELETS [Concomitant]
     Active Substance: HUMAN PLATELET, ALLOGENIC
     Dosage: UNK
     Route: 042
     Dates: start: 20211108, end: 20211108
  36. VALDERMA [Concomitant]
     Indication: Haemorrhoids
     Dosage: UNK
     Route: 048
     Dates: start: 20211029
  37. VALDERMA [Concomitant]
     Indication: Haemorrhoids
  38. MESALAMINE [Concomitant]
     Active Substance: MESALAMINE
     Indication: Haemorrhoids
     Dosage: 1 SUPPOST
     Route: 054
     Dates: start: 20211029
  39. MESALAMINE [Concomitant]
     Active Substance: MESALAMINE
     Indication: Haemorrhoids
  40. LASSAR PASTA MERCK [Concomitant]
     Indication: Haemorrhoids
     Dosage: UNK
     Route: 061
     Dates: start: 20211029
  41. LASSAR PASTA MERCK [Concomitant]
     Indication: Haemorrhoids
  42. SARS-COV-2 VACCINE [Concomitant]
     Indication: COVID-19 immunisation
     Dosage: UNK
     Route: 030
     Dates: start: 20210314, end: 20210314
  43. SARS-COV-2 VACCINE [Concomitant]
     Dosage: UNK
     Route: 030
     Dates: start: 20210314, end: 20210314
  44. PURSENNID [SENNA ALEXANDRINA LEAF] [Concomitant]
     Indication: Constipation
     Dosage: 2 TABLETS, ONCE
     Route: 048
     Dates: start: 20211119, end: 20211119
  45. POTASSIUM CHLORIDE [Concomitant]
     Active Substance: POTASSIUM CHLORIDE
     Dosage: 20 MEQ, QD
     Route: 042
     Dates: start: 20211118, end: 20211119
  46. PIPERACILLIN SODIUM\TAZOBACTAM SODIUM [Concomitant]
     Active Substance: PIPERACILLIN SODIUM\TAZOBACTAM SODIUM
     Dosage: 4 G/ 0.5 G, TID
     Route: 042
     Dates: start: 20211117, end: 20211119
  47. PIPERACILLIN SODIUM\TAZOBACTAM SODIUM [Concomitant]
     Active Substance: PIPERACILLIN SODIUM\TAZOBACTAM SODIUM
     Dosage: 4 G/ 0.5 G, ONCE
     Route: 042
     Dates: start: 20211120, end: 20211120
  48. OXYGEN [Concomitant]
     Active Substance: OXYGEN
     Dosage: 1 TO 2 LITRES PER MINUTE AS NEEDED
     Dates: start: 20211117, end: 20211117
  49. OXYGEN [Concomitant]
     Active Substance: OXYGEN
     Dosage: 3 LITRES PER MINUTE AS NEEDED
     Dates: start: 20211118, end: 20211119
  50. OXYGEN [Concomitant]
     Active Substance: OXYGEN
     Dosage: 4 LITRES PER MINUTE AS NEEDED
     Dates: start: 20211120

REACTIONS (21)
  - Acute myeloid leukaemia [Fatal]
  - Neutropenia [Unknown]
  - Thrombocytopenia [Unknown]
  - Hypokalaemia [Unknown]
  - Anaemia [Unknown]
  - Hyponatraemia [Recovering/Resolving]
  - Asthenia [Unknown]
  - Nausea [Unknown]
  - Vomiting [Unknown]
  - Diarrhoea [Unknown]
  - Constipation [Unknown]
  - Pain [Unknown]
  - Tachycardia [Unknown]
  - Drug-induced liver injury [Not Recovered/Not Resolved]
  - Pneumonia [Not Recovered/Not Resolved]
  - Renal disorder [Unknown]
  - Infection [Unknown]
  - Blood lactate dehydrogenase increased [Unknown]
  - Blood bilirubin increased [Unknown]
  - Aspartate aminotransferase increased [Unknown]
  - Blood alkaline phosphatase increased [Unknown]

NARRATIVE: CASE EVENT DATE: 20210811
